FAERS Safety Report 4315995-4 (Version None)
Quarter: 2004Q1

REPORT INFORMATION
  Report Type: 
  Country: None (occurrence: None)
  Receive Date: 20040311
  Receipt Date: 20040303
  Transmission Date: 20041129
  Serious: Yes (Other)
  Sender: FDA-Public Use
  Company Number: 2004196753JP

PATIENT
  Age: 74 Year
  Sex: Male
  Weight: 47 kg

DRUGS (2)
  1. AZULFIDINE [Suspect]
     Dosage: 1 D/DAY,ORAL
     Route: 048
     Dates: start: 20031201, end: 20040127
  2. BLOPRESS (CANDESARTAN CILEXETIL) [Concomitant]

REACTIONS (10)
  - ARTHRALGIA [None]
  - DECREASED APPETITE [None]
  - DIPLOPIA [None]
  - ERYTHEMA [None]
  - HYPOTHYROIDISM [None]
  - OEDEMA PERIPHERAL [None]
  - PAIN IN EXTREMITY [None]
  - PYREXIA [None]
  - TACHYCARDIA [None]
  - WEIGHT DECREASED [None]
